FAERS Safety Report 7439280-7 (Version None)
Quarter: 2011Q2

REPORT INFORMATION
  Report Type: 
  Country: None (occurrence: None)
  Receive Date: 20110408
  Receipt Date: 20110406
  Transmission Date: 20111010
  Serious: Yes (Hospitalization)
  Sender: FDA-Public Use
  Company Number: AECAN201100052

PATIENT
  Age: 8 Year
  Sex: Male

DRUGS (11)
  1. MEROPENEM [Concomitant]
  2. CORTEF /00028611/ [Concomitant]
  3. IMURAN [Concomitant]
  4. GAMUNEX [Suspect]
     Indication: NETHERTON'S SYNDROME
     Dosage: 3.75 GM; TOTAL; IV
     Route: 042
     Dates: start: 20110131, end: 20110301
  5. REACTINE /00884302/ [Concomitant]
  6. NORVASC [Concomitant]
  7. URSODIOL [Concomitant]
  8. TYLENOL (CAPLET) [Concomitant]
  9. BENADRYL [Concomitant]
  10. ZOFRAN [Concomitant]
  11. ROCALTROL [Concomitant]

REACTIONS (8)
  - VOMITING [None]
  - GENERAL PHYSICAL HEALTH DETERIORATION [None]
  - HYPERTENSION [None]
  - PYREXIA [None]
  - ANAPHYLACTIC SHOCK [None]
  - NAUSEA [None]
  - ABDOMINAL PAIN [None]
  - ACINETOBACTER TEST POSITIVE [None]
